FAERS Safety Report 11389269 (Version 2)
Quarter: 2015Q3

REPORT INFORMATION
  Report Type: Report from Study
  Country: US (occurrence: NO)
  Receive Date: 20150817
  Receipt Date: 20150901
  Transmission Date: 20151125
  Serious: Yes (Death)
  Sender: FDA-Public Use
  Company Number: NO-FRI-1000078272

PATIENT
  Age: 62 Year
  Sex: Male
  Weight: 115 kg

DRUGS (4)
  1. THEO DUR [Concomitant]
  2. ATROVENT [Concomitant]
     Active Substance: IPRATROPIUM BROMIDE
     Route: 055
  3. ROFLUMILAST [Suspect]
     Active Substance: ROFLUMILAST
     Indication: CHRONIC OBSTRUCTIVE PULMONARY DISEASE
     Dosage: 500 MCG
     Route: 048
  4. VENTOLINE [Concomitant]
     Active Substance: ALBUTEROL
     Route: 055

REACTIONS (1)
  - Sudden death [Fatal]

NARRATIVE: CASE EVENT DATE: 20140820
